FAERS Safety Report 9854481 (Version 1)
Quarter: 2014Q1

REPORT INFORMATION
  Report Type: Spontaneous
  Country: US (occurrence: US)
  Receive Date: 20140130
  Receipt Date: 20140130
  Transmission Date: 20141002
  Serious: No
  Sender: FDA-Public Use
  Company Number: US-BIOGENIDEC-2014BI007261

PATIENT
  Sex: Female

DRUGS (8)
  1. TECFIDERA [Suspect]
     Indication: MULTIPLE SCLEROSIS
     Route: 048
  2. CALCIUM 600 [Concomitant]
  3. FLOMAX [Concomitant]
  4. FOSAMAX [Concomitant]
  5. PROZAC [Concomitant]
  6. VESICARE [Concomitant]
  7. VITAMIN B12 [Concomitant]
  8. VITAMIN D3 [Concomitant]

REACTIONS (2)
  - Intentional underdose [Not Recovered/Not Resolved]
  - Abdominal discomfort [Unknown]
